FAERS Safety Report 4957894-0 (Version None)
Quarter: 2006Q1

REPORT INFORMATION
  Report Type: 
  Country: None (occurrence: None)
  Receive Date: 20060127
  Receipt Date: 20050801
  Transmission Date: 20060701
  Serious: Yes (Hospitalization)
  Sender: FDA-Public Use
  Company Number: 05-08-1361

PATIENT
  Age: 51 Year
  Sex: Female
  Weight: 83.9154 kg

DRUGS (4)
  1. CLOZAPINE [Suspect]
     Dosage: 100-500MG QD, ORAL
     Route: 048
     Dates: start: 20001101
  2. ARTANE [Concomitant]
  3. BENADRYL [Concomitant]
  4. DEPAKOTE [Concomitant]

REACTIONS (1)
  - GASTROINTESTINAL DISORDER [None]
